FAERS Safety Report 8001797-4 (Version None)
Quarter: 2011Q4

REPORT INFORMATION
  Report Type: 
  Country: None (occurrence: None)
  Receive Date: 20111222
  Receipt Date: 20110516
  Transmission Date: 20120403
  Serious: Yes (Death)
  Sender: FDA-Public Use
  Company Number: GB-ROCHE-777564

PATIENT
  Age: 62 Year
  Sex: Female
  Weight: 61 kg

DRUGS (8)
  1. TRAMADOL HCL [Concomitant]
  2. FERROUS SULFATE TAB [Concomitant]
  3. LISINOPRIL [Concomitant]
  4. SIMVASTATIN [Concomitant]
  5. AMLODIPINE [Concomitant]
  6. CITALOPRAM [Concomitant]
  7. NAPROXEN [Concomitant]
  8. ACTEMRA [Suspect]
     Indication: RHEUMATOID ARTHRITIS
     Route: 042
     Dates: start: 20101125, end: 20110203

REACTIONS (1)
  - PANCREATITIS ACUTE [None]
